FAERS Safety Report 7319059-7 (Version None)
Quarter: 2011Q1

REPORT INFORMATION
  Report Type: 
  Country: None (occurrence: None)
  Receive Date: 20110228
  Receipt Date: 20110222
  Transmission Date: 20110831
  Serious: Yes (Other)
  Sender: FDA-Public Use
  Company Number: US-PFIZER INC-HQWYE530721JUN04

PATIENT
  Sex: Female
  Weight: 60 kg

DRUGS (10)
  1. PROVERA [Suspect]
     Indication: HORMONE REPLACEMENT THERAPY
     Dosage: 2.5 MG, UNK
     Route: 048
  2. MEDROXYPROGESTERONE ACETATE [Suspect]
     Indication: HORMONE REPLACEMENT THERAPY
     Dosage: 2.5 TO 10MG
     Route: 048
     Dates: start: 19940401, end: 19960501
  3. CYCRIN [Suspect]
     Indication: HORMONE REPLACEMENT THERAPY
     Dosage: 2.5 TO 10MG
     Route: 048
     Dates: start: 19920301, end: 19940401
  4. MEDROXYPROGESTERONE ACETATE [Suspect]
     Dosage: 2.5 TO 10MG
     Dates: start: 20000201, end: 20000901
  5. LOVASTATIN [Concomitant]
     Indication: BLOOD CHOLESTEROL INCREASED
     Dosage: UNK
     Dates: start: 19990101, end: 20050101
  6. PREMARIN [Suspect]
     Dosage: 0.624 MG, UNK
     Dates: start: 19980501, end: 20000901
  7. CYCRIN [Suspect]
     Dosage: 2.5 TO 10MG
     Dates: start: 19960501, end: 20000201
  8. PREMARIN [Suspect]
     Indication: HORMONE REPLACEMENT THERAPY
     Dosage: 0.624 MG, UNK
     Route: 048
     Dates: start: 19920301, end: 19970501
  9. PREMPRO [Suspect]
     Indication: HORMONE REPLACEMENT THERAPY
     Dosage: UNK
     Route: 048
  10. ESTRACE [Suspect]
     Indication: HORMONE REPLACEMENT THERAPY
     Dosage: 0.5 MG, UNK
     Dates: start: 19970501, end: 19980501

REACTIONS (1)
  - BREAST CANCER METASTATIC [None]
